FAERS Safety Report 4323443-3 (Version None)
Quarter: 2004Q1

REPORT INFORMATION
  Report Type: 
  Country: None (occurrence: None)
  Receive Date: 20040325
  Receipt Date: 20010319
  Transmission Date: 20041129
  Serious: Yes (Death)
  Sender: FDA-Public Use
  Company Number: US-ROCHE-256955

PATIENT
  Age: 16 Year
  Sex: Male
  Weight: 61.2 kg

DRUGS (3)
  1. ACCUTANE [Suspect]
     Indication: ACNE
     Route: 048
     Dates: start: 20001006, end: 20001128
  2. ACCUTANE [Suspect]
     Route: 048
     Dates: start: 20001128, end: 20010116
  3. ACCUTANE [Suspect]
     Route: 048
     Dates: start: 20010116

REACTIONS (7)
  - COMPLETED SUICIDE [None]
  - DEPRESSION [None]
  - DRY SKIN [None]
  - GUN SHOT WOUND [None]
  - HEAD INJURY [None]
  - LIP DRY [None]
  - TREATMENT NONCOMPLIANCE [None]
